FAERS Safety Report 19808261 (Version 1)
Quarter: 2021Q3

REPORT INFORMATION
  Report Type: Spontaneous
  Country: US (occurrence: US)
  Receive Date: 20210903
  Receipt Date: 20210903
  Transmission Date: 20211014
  Serious: Yes (Hospitalization)
  Sender: FDA-Public Use
  Company Number: None

PATIENT
  Age: 58 Year
  Sex: Female

DRUGS (2)
  1. MYCOPHENOLIC ACID DR 360MG [Suspect]
     Active Substance: MYCOPHENOLIC ACID
     Indication: LIVER TRANSPLANT
     Route: 048
     Dates: start: 20120112
  2. EVEROLIMUS 0.5MG ROXANE [Suspect]
     Active Substance: EVEROLIMUS
     Indication: LIVER TRANSPLANT
     Dosage: 0.5  MG TAKE 2 TABLETS BY MOUTH IN THE MORNING AMD 3 TABLETS  AT BEDTIME
     Route: 048
     Dates: start: 20120112

REACTIONS (5)
  - Chills [None]
  - Nausea [None]
  - Vomiting [None]
  - Pyrexia [None]
  - Pneumonia [None]

NARRATIVE: CASE EVENT DATE: 202104
